FAERS Safety Report 8111090-7 (Version None)
Quarter: 2012Q1

REPORT INFORMATION
  Report Type: 
  Country: None (occurrence: None)
  Receive Date: 20120203
  Receipt Date: 20110405
  Transmission Date: 20120608
  Serious: Yes (Other)
  Sender: FDA-Public Use
  Company Number: US-GLAXOSMITHKLINE-A0922343A

PATIENT
  Age: 39 Year
  Sex: Female

DRUGS (1)
  1. LAMICTAL [Suspect]
     Dosage: 200MG UNKNOWN
     Route: 065
     Dates: start: 20090316, end: 20110315

REACTIONS (1)
  - CONVULSION [None]
